FAERS Safety Report 7792203-3 (Version None)
Quarter: 2011Q4

REPORT INFORMATION
  Report Type: 
  Country: None (occurrence: None)
  Receive Date: 20111003
  Receipt Date: 20111003
  Transmission Date: 20120403
  Serious: Yes (Life-Threatening)
  Sender: FDA-Public Use
  Company Number: None

PATIENT
  Age: 75 Year
  Sex: Female
  Weight: 45.359 kg

DRUGS (1)
  1. COUMADIN [Suspect]
     Indication: ATRIAL FIBRILLATION
     Dosage: 4 UNITS
     Dates: start: 20030128, end: 20100901

REACTIONS (10)
  - FATIGUE [None]
  - HAEMORRHAGE [None]
  - NASOPHARYNGITIS [None]
  - DEPRESSION [None]
  - ALOPECIA [None]
  - PAIN [None]
  - ANAEMIA [None]
  - CARDIAC FAILURE CONGESTIVE [None]
  - MYELODYSPLASTIC SYNDROME [None]
  - SKIN DISCOLOURATION [None]
